FAERS Safety Report 9671328 (Version 3)
Quarter: 2013Q4

REPORT INFORMATION
  Report Type: Report from Study
  Country: US (occurrence: US)
  Receive Date: 20131106
  Receipt Date: 20131121
  Transmission Date: 20140711
  Serious: Yes (Hospitalization)
  Sender: FDA-Public Use
  Company Number: US-009507513-1211USA008993

PATIENT
  Age: 83 Year
  Sex: Male

DRUGS (11)
  1. POST TRIAL THERAPY [Suspect]
     Indication: PROPHYLAXIS
  2. FUROSEMIDE [Suspect]
     Indication: FLUID OVERLOAD
     Dosage: 100 MG, BID
     Route: 048
     Dates: start: 20121111, end: 20121127
  3. HYDROCODONE [Concomitant]
     Indication: PAIN
     Dosage: UNK, PRN
     Route: 048
     Dates: start: 199201
  4. PRINIVIL [Concomitant]
     Indication: HYPERTENSION
     Dosage: 20 MG, QD
     Route: 048
     Dates: start: 200901, end: 20121111
  5. LASIX (FUROSEMIDE) [Concomitant]
     Indication: HYPERTENSION
     Dosage: 20 MG, QD
     Route: 048
     Dates: start: 201201, end: 20121111
  6. TAMSULOSIN HYDROCHLORIDE [Concomitant]
     Indication: PROSTATOMEGALY
     Dosage: 0.4 MG, QD
     Route: 048
     Dates: start: 201201
  7. VITAMINS (UNSPECIFIED) [Concomitant]
     Dosage: UNK
     Dates: start: 195001
  8. SELENIUM (UNSPECIFIED) [Concomitant]
     Dosage: UNK
     Dates: start: 199701
  9. OMEGA-3 MARINE TRIGLYCERIDES [Concomitant]
     Indication: ROUTINE HEALTH MAINTENANCE
     Dosage: 1000 MG, BID
     Route: 048
     Dates: start: 200201
  10. CHOLECALCIFEROL [Concomitant]
     Indication: ROUTINE HEALTH MAINTENANCE
     Dosage: 2000 UNITS QD
     Route: 048
     Dates: start: 200201
  11. ALEVE [Concomitant]
     Dosage: UNK
     Dates: start: 200701

REACTIONS (2)
  - Hepatic cirrhosis [Not Recovered/Not Resolved]
  - Renal failure acute [Recovered/Resolved]
